FAERS Safety Report 9285830 (Version 1)
Quarter: 2013Q2

REPORT INFORMATION
  Report Type: Spontaneous
  Country: FR (occurrence: FR)
  Receive Date: 20130513
  Receipt Date: 20130513
  Transmission Date: 20140414
  Serious: Yes (Hospitalization)
  Sender: FDA-Public Use
  Company Number: FR-PFIZER INC-2013142443

PATIENT
  Age: 47 Year
  Sex: Female

DRUGS (2)
  1. DOSTINEX [Suspect]
     Dosage: 0.5 MG, 1X/DAY
     Route: 048
  2. SURGESTONE [Suspect]
     Indication: CONTRACEPTION
     Dosage: 15 DAYS/MONTH
     Route: 048

REACTIONS (1)
  - Cerebral infarction [Recovered/Resolved]
